FAERS Safety Report 5545248-8 (Version None)
Quarter: 2007Q4

REPORT INFORMATION
  Report Type: 
  Country: None (occurrence: None)
  Receive Date: 20071123
  Receipt Date: 20070413
  Transmission Date: 20080405
  Serious: Yes (Hospitalization, Other)
  Sender: FDA-Public Use
  Company Number: 36019

PATIENT
  Age: 55 Year
  Sex: Male

DRUGS (1)
  1. LEUCOVORIN CALCIUM [Suspect]
     Dosage: 30 MG IV 5/4 WEEK
     Route: 042
     Dates: start: 20070305, end: 20070309

REACTIONS (3)
  - ANOREXIA [None]
  - DEHYDRATION [None]
  - LABORATORY TEST ABNORMAL [None]
